FAERS Safety Report 15044879 (Version 1)
Quarter: 2018Q2

REPORT INFORMATION
  Report Type: Spontaneous
  Country: DE (occurrence: DE)
  Receive Date: 20180621
  Receipt Date: 20180621
  Transmission Date: 20180711
  Serious: Yes (Hospitalization)
  Sender: FDA-Public Use
  Company Number: DE-TEVA-2018-DE-911804

PATIENT
  Age: 88 Year
  Sex: Male
  Weight: 90 kg

DRUGS (10)
  1. EISEN [Concomitant]
     Dosage: 100 MG, 0-0-1-0/JEDEN 2. TAG
  2. RAMIPRIL. [Suspect]
     Active Substance: RAMIPRIL
     Dosage: 10 MILLIGRAM DAILY; 10 MG, 1-0-0-0
  3. CATAPRESAN [Suspect]
     Active Substance: CLONIDINE
     Dosage: 450 MILLIGRAM DAILY; 300 MG, 1-0-0.5-0
  4. LOCOL [Concomitant]
     Active Substance: FLUVASTATIN SODIUM
     Dosage: 20 MILLIGRAM DAILY; 20 MG, 0-0-1-0
  5. ALLOPURINOL. [Concomitant]
     Active Substance: ALLOPURINOL
     Dosage: 300 MILLIGRAM DAILY; 300 MG, 1-0-0-0
  6. INSULIN HUMAN [Concomitant]
     Active Substance: INSULIN HUMAN
     Dosage: NK IE, NACH BZ
     Route: 065
  7. ASS 100 [Concomitant]
     Active Substance: ASPIRIN
     Dosage: 100 MILLIGRAM DAILY; 100 MG, 1-0-0-0
  8. METFORMIN [Concomitant]
     Active Substance: METFORMIN HYDROCHLORIDE
     Dosage: NK MG, 1-0-0-1
  9. LANTUS [Concomitant]
     Active Substance: INSULIN GLARGINE
     Dosage: 24 IE, 0-0-1-0
     Route: 065
  10. HYDROCHLOROTHIAZIDE. [Suspect]
     Active Substance: HYDROCHLOROTHIAZIDE
     Dosage: 25 MILLIGRAM DAILY; 25 MG, 1-0-0-0

REACTIONS (3)
  - Asthenia [Unknown]
  - Circulatory collapse [Unknown]
  - Drug prescribing error [Unknown]
